FAERS Safety Report 24927357 (Version 2)
Quarter: 2025Q1

REPORT INFORMATION
  Report Type: Spontaneous
  Country: FR (occurrence: FR)
  Receive Date: 20250205
  Receipt Date: 20250306
  Transmission Date: 20250409
  Serious: Yes (Hospitalization)
  Sender: SANDOZ
  Company Number: FR-GILEAD-2024-0678977

PATIENT
  Sex: Female
  Weight: 51 kg

DRUGS (38)
  1. CARBOPLATIN [Suspect]
     Active Substance: CARBOPLATIN
     Route: 042
     Dates: start: 20240612, end: 20240612
  2. CARBOPLATIN [Suspect]
     Active Substance: CARBOPLATIN
     Indication: Non-small cell lung cancer metastatic
     Route: 042
     Dates: start: 20240522, end: 20240522
  3. CARBOPLATIN [Suspect]
     Active Substance: CARBOPLATIN
     Route: 042
     Dates: start: 20240430, end: 20240430
  4. PEMETREXED [Suspect]
     Active Substance: PEMETREXED
     Route: 042
     Dates: start: 20240430, end: 20240430
  5. PEMETREXED [Suspect]
     Active Substance: PEMETREXED
     Route: 042
     Dates: start: 20240522, end: 20240522
  6. PEMETREXED [Suspect]
     Active Substance: PEMETREXED
     Route: 042
     Dates: start: 20240612, end: 20240612
  7. PEMETREXED [Suspect]
     Active Substance: PEMETREXED
     Indication: Non-small cell lung cancer metastatic
     Route: 042
     Dates: start: 20240430, end: 20240612
  8. ZIMBERELIMAB [Suspect]
     Active Substance: ZIMBERELIMAB
     Route: 042
     Dates: start: 20240430, end: 20240430
  9. ZIMBERELIMAB [Suspect]
     Active Substance: ZIMBERELIMAB
     Route: 042
     Dates: start: 20240522, end: 20240522
  10. ZIMBERELIMAB [Suspect]
     Active Substance: ZIMBERELIMAB
     Route: 042
     Dates: start: 20240612, end: 20240612
  11. ZIMBERELIMAB [Suspect]
     Active Substance: ZIMBERELIMAB
     Route: 042
     Dates: start: 20240723, end: 20240723
  12. ZIMBERELIMAB [Suspect]
     Active Substance: ZIMBERELIMAB
     Route: 042
     Dates: start: 20240913, end: 20240913
  13. ZIMBERELIMAB [Suspect]
     Active Substance: ZIMBERELIMAB
     Route: 042
     Dates: start: 20241002, end: 20241002
  14. ZIMBERELIMAB [Suspect]
     Active Substance: ZIMBERELIMAB
     Route: 042
     Dates: start: 20241023, end: 20241023
  15. ZIMBERELIMAB [Suspect]
     Active Substance: ZIMBERELIMAB
     Route: 042
     Dates: start: 20241206, end: 20241206
  16. ZIMBERELIMAB [Suspect]
     Active Substance: ZIMBERELIMAB
     Route: 042
     Dates: start: 20241227, end: 20241227
  17. ZIMBERELIMAB [Suspect]
     Active Substance: ZIMBERELIMAB
     Route: 042
     Dates: start: 20250117, end: 20250117
  18. ZIMBERELIMAB [Suspect]
     Active Substance: ZIMBERELIMAB
     Indication: Non-small cell lung cancer metastatic
     Route: 042
     Dates: start: 20240430, end: 20240723
  19. APREPITANT [Concomitant]
     Active Substance: APREPITANT
     Indication: Premedication
     Route: 048
     Dates: start: 20240430
  20. CETIRIZINE HYDROCHLORIDE [Concomitant]
     Active Substance: CETIRIZINE HYDROCHLORIDE
     Indication: Dermatitis
     Route: 048
     Dates: start: 20240522
  21. PREDNISONE [Concomitant]
     Active Substance: PREDNISONE
     Indication: Premedication
     Route: 048
     Dates: start: 20240429
  22. DARBEPOETIN ALFA [Concomitant]
     Active Substance: DARBEPOETIN ALFA
     Indication: Anaemia
     Route: 058
     Dates: start: 20240522
  23. DIPROSONE [Concomitant]
     Active Substance: BETAMETHASONE DIPROPIONATE
     Indication: Dermatitis
     Route: 003
     Dates: start: 20240522
  24. FOLIC ACID [Concomitant]
     Active Substance: FOLIC ACID
     Indication: Prophylaxis
     Route: 048
     Dates: start: 20240410
  25. FERROUS FUMARATE [Concomitant]
     Active Substance: FERROUS FUMARATE
     Indication: Anaemia
     Route: 048
     Dates: start: 20240708
  26. HYDROXYZINE [Concomitant]
     Active Substance: HYDROXYZINE HYDROCHLORIDE
     Indication: Dermatitis
     Route: 048
     Dates: start: 20240522
  27. IRBESARTAN [Concomitant]
     Active Substance: IRBESARTAN
     Indication: Hypertension
     Route: 048
     Dates: start: 2021
  28. LEVETIRACETAM [Concomitant]
     Active Substance: LEVETIRACETAM
     Indication: Epilepsy
     Route: 048
     Dates: start: 202402
  29. NICARDIPINE HYDROCHLORIDE [Concomitant]
     Active Substance: NICARDIPINE HYDROCHLORIDE
     Indication: Hypertension
     Route: 048
     Dates: start: 2021
  30. POLYETHYLENE GLYCOL 3350 [Concomitant]
     Active Substance: POLYETHYLENE GLYCOL 3350
     Indication: Prophylaxis
     Route: 048
     Dates: start: 20240410
  31. METOCLOPRAMIDE [Concomitant]
     Active Substance: METOCLOPRAMIDE
     Indication: Prophylaxis
     Route: 048
     Dates: start: 20240410
  32. NEBIVOLOL [Concomitant]
     Active Substance: NEBIVOLOL
     Indication: Hypertension
     Route: 048
     Dates: start: 2021
  33. ACETAMINOPHEN [Concomitant]
     Active Substance: ACETAMINOPHEN
     Indication: Prophylaxis
     Route: 048
     Dates: start: 20240410
  34. PEGFILGRASTIM [Concomitant]
     Active Substance: PEGFILGRASTIM
     Indication: Prophylaxis
     Route: 058
     Dates: start: 20240501
  35. PHLOROGLUCINOL [Concomitant]
     Active Substance: PHLOROGLUCINOL
     Indication: Prophylaxis
     Route: 048
     Dates: start: 20240410
  36. PHLOROGLUCINOL [Concomitant]
     Active Substance: PHLOROGLUCINOL
     Route: 048
     Dates: start: 20241009
  37. RACECADOTRIL [Concomitant]
     Active Substance: RACECADOTRIL
     Indication: Prophylaxis
     Route: 048
     Dates: start: 20240410
  38. VITAMIN B12 [Concomitant]
     Active Substance: CYANOCOBALAMIN
     Indication: Premedication
     Route: 048
     Dates: start: 20240423

REACTIONS (2)
  - Cranioplasty [Recovered/Resolved]
  - Postoperative wound infection [Recovered/Resolved]

NARRATIVE: CASE EVENT DATE: 20240627
